FAERS Safety Report 23341151 (Version 1)
Quarter: 2023Q4

REPORT INFORMATION
  Report Type: Report from Study
  Country: JP (occurrence: JP)
  Receive Date: 20231227
  Receipt Date: 20231227
  Transmission Date: 20240109
  Serious: Yes (Hospitalization)
  Sender: FDA-Public Use
  Company Number: JP-AstraZeneca-2023A283141

PATIENT
  Sex: Female

DRUGS (4)
  1. DENOSUMAB [Suspect]
     Active Substance: DENOSUMAB
     Indication: Product used for unknown indication
     Dosage: UNK
     Route: 058
  2. CAPECITABINE [Suspect]
     Active Substance: CAPECITABINE
     Indication: Breast cancer
     Dosage: 1250 MG/M2
     Route: 048
     Dates: start: 20230110, end: 20230214
  3. CAPECITABINE [Suspect]
     Active Substance: CAPECITABINE
     Dosage: 950 MG/M2
     Route: 048
     Dates: start: 20230221, end: 20230307
  4. CAPECITABINE [Suspect]
     Active Substance: CAPECITABINE
     Dosage: 625 MG/M2
     Route: 048
     Dates: start: 20230314, end: 20231121

REACTIONS (1)
  - Femur fracture [Not Recovered/Not Resolved]

NARRATIVE: CASE EVENT DATE: 20231211
